FAERS Safety Report 4696371-1 (Version None)
Quarter: 2005Q2

REPORT INFORMATION
  Report Type: 
  Country: None (occurrence: None)
  Receive Date: 20050620
  Receipt Date: 20050610
  Transmission Date: 20051028
  Serious: Yes (Hospitalization, Other)
  Sender: FDA-Public Use
  Company Number: KII-2005-0017035

PATIENT
  Age: 63 Year
  Sex: Female

DRUGS (14)
  1. OXYCODONE HCL [Suspect]
     Indication: DRUG USE FOR UNKNOWN INDICATION
     Dosage: ORAL
     Route: 048
  2. MORPHINE [Suspect]
     Indication: DRUG USE FOR UNKNOWN INDICATION
     Dosage: ORAL
     Route: 048
  3. VERAPAMIL [Suspect]
  4. METFORMIN HCL [Suspect]
  5. SSRI () [Suspect]
  6. GABAPENTIN [Suspect]
  7. BENZTROPEINE (BENZTROPEINE) [Suspect]
  8. COLCHICINE (COLCHICINE) [Suspect]
  9. PROTON PUMP INHIBITOR () [Suspect]
  10. FUROSEMIDE (FUROSEMIDE) [Suspect]
  11. HYDROCHLOROTHIAZIDE [Suspect]
  12. ASPIRIN [Suspect]
  13. FOLIC ACID [Suspect]
  14. DOCUSATE (DOCUSATE) [Suspect]

REACTIONS (5)
  - DEPRESSED LEVEL OF CONSCIOUSNESS [None]
  - HEMIPARESIS [None]
  - PNEUMONIA [None]
  - RESPIRATORY RATE DECREASED [None]
  - SEPTIC SHOCK [None]
